FAERS Safety Report 8210322-4 (Version None)
Quarter: 2012Q1

REPORT INFORMATION
  Report Type: 
  Country: None (occurrence: None)
  Receive Date: 20120314
  Receipt Date: 20120312
  Transmission Date: 20120608
  Serious: Yes (Hospitalization, Other)
  Sender: FDA-Public Use
  Company Number: BR-ROCHE-795182

PATIENT
  Sex: Female
  Weight: 56 kg

DRUGS (8)
  1. COPEGUS [Suspect]
     Indication: HEPATITIS C
     Dosage: DOSE:  1000 DAILY
     Route: 048
     Dates: start: 20110217, end: 20111006
  2. CAPTOPRIL [Concomitant]
     Indication: HYPERTENSION
     Route: 048
  3. GLYBURIDE [Concomitant]
     Indication: DIABETES MELLITUS
     Route: 048
  4. PEGINTERFERON ALFA-2A [Suspect]
     Indication: HEPATITIS C
     Dosage: DOSE:  180 WEEKLY
     Route: 058
     Dates: start: 20110217, end: 20111006
  5. METFORMIN [Concomitant]
     Dates: start: 20110512
  6. CEFEPIME [Concomitant]
     Indication: NEUTROPENIA
     Route: 042
     Dates: start: 20110710, end: 20110717
  7. LEVOTHYROXINE SODIUM [Concomitant]
     Indication: HYPOTHYROIDISM
     Route: 048
  8. NEUPOGEN [Concomitant]
     Indication: NEUTROPENIA
     Route: 058
     Dates: start: 20110710, end: 20110717

REACTIONS (2)
  - PANCYTOPENIA [None]
  - RESPIRATORY FAILURE [None]
